FAERS Safety Report 25664253 (Version 2)
Quarter: 2025Q3

REPORT INFORMATION
  Report Type: Report from Study
  Country: US (occurrence: US)
  Receive Date: 20250811
  Receipt Date: 20250829
  Transmission Date: 20251021
  Serious: Yes (Other)
  Sender: SUNOVION
  Company Number: US-SMPA-2025SPA010037

PATIENT
  Age: 74 Year
  Sex: Male

DRUGS (10)
  1. ORGOVYX [Suspect]
     Active Substance: RELUGOLIX
     Indication: Prostate cancer
     Route: 048
     Dates: start: 20250623, end: 20250623
  2. ORGOVYX [Suspect]
     Active Substance: RELUGOLIX
     Route: 048
  3. VITAMINS [Concomitant]
     Active Substance: VITAMINS
  4. LOSARTAN [Concomitant]
     Active Substance: LOSARTAN
  5. MELATONIN [Concomitant]
     Active Substance: MELATONIN
  6. NUBEQA [Concomitant]
     Active Substance: DAROLUTAMIDE
  7. TRAMADOL [Concomitant]
     Active Substance: TRAMADOL
  8. TUMS [Concomitant]
     Active Substance: CALCIUM CARBONATE
  9. TYLENOL [Concomitant]
     Active Substance: ACETAMINOPHEN
  10. VITAMIN D3 [Concomitant]
     Active Substance: CHOLECALCIFEROL

REACTIONS (5)
  - Pelvic fracture [Unknown]
  - Road traffic accident [Unknown]
  - Pain [Unknown]
  - Hot flush [Unknown]
  - Fatigue [Unknown]
